FAERS Safety Report 12562647 (Version 3)
Quarter: 2016Q3

REPORT INFORMATION
  Report Type: Spontaneous
  Country: US (occurrence: US)
  Receive Date: 20160715
  Receipt Date: 20160808
  Transmission Date: 20161109
  Serious: No
  Sender: FDA-Public Use
  Company Number: US-BEH-2016062379

PATIENT
  Sex: Female
  Weight: 31 kg

DRUGS (29)
  1. HIZENTRA [Suspect]
     Active Substance: HUMAN IMMUNOGLOBULIN G
     Indication: SELECTIVE IGG SUBCLASS DEFICIENCY
     Route: 058
     Dates: start: 20140507
  2. TYLENOL [Concomitant]
     Active Substance: ACETAMINOPHEN
  3. DIASTAT [Concomitant]
     Active Substance: DIAZEPAM
  4. ALBUTEROL. [Concomitant]
     Active Substance: ALBUTEROL
  5. DEPO-PROVERA [Concomitant]
     Active Substance: MEDROXYPROGESTERONE ACETATE
  6. TOPIRAMATE. [Concomitant]
     Active Substance: TOPIRAMATE
  7. FLONASE [Concomitant]
     Active Substance: FLUTICASONE PROPIONATE
  8. DIPHENHYDRAMINE. [Concomitant]
     Active Substance: DIPHENHYDRAMINE
  9. PREVACID [Concomitant]
     Active Substance: LANSOPRAZOLE
  10. HIZENTRA [Suspect]
     Active Substance: HUMAN IMMUNOGLOBULIN G
     Route: 058
  11. SINGULAIR [Concomitant]
     Active Substance: MONTELUKAST SODIUM
  12. INTUNIV [Concomitant]
     Active Substance: GUANFACINE HYDROCHLORIDE
  13. VITAMIN E [Concomitant]
     Active Substance: .ALPHA.-TOCOPHEROL
  14. NASONEX [Concomitant]
     Active Substance: MOMETASONE FUROATE
  15. VITAMIN C [Concomitant]
     Active Substance: ASCORBIC ACID
  16. PREDNISONE. [Concomitant]
     Active Substance: PREDNISONE
  17. PATANASE [Concomitant]
     Active Substance: OLOPATADINE HYDROCHLORIDE
  18. CLONAZEPAM. [Concomitant]
     Active Substance: CLONAZEPAM
  19. ZYRTEC [Concomitant]
     Active Substance: CETIRIZINE HYDROCHLORIDE
  20. CULTURELLE [Concomitant]
     Active Substance: LACTOBACILLUS RHAMNOSUS
  21. HIZENTRA [Suspect]
     Active Substance: HUMAN IMMUNOGLOBULIN G
     Route: 058
  22. LIDOCAINE. [Concomitant]
     Active Substance: LIDOCAINE
  23. EPIPEN [Concomitant]
     Active Substance: EPINEPHRINE
  24. DALLERGY [Concomitant]
     Active Substance: CHLORCYCLIZINE HYDROCHLORIDE\PHENYLEPHRINE\PHENYLEPHRINE HYDROCHLORIDE
  25. BANZEL [Concomitant]
     Active Substance: RUFINAMIDE
  26. AMITRIPTYLINE [Concomitant]
     Active Substance: AMITRIPTYLINE
  27. GLYCOLAX [Concomitant]
     Active Substance: POLYETHYLENE GLYCOL 3350
  28. IRON [Concomitant]
     Active Substance: IRON
  29. SENOKOT [Concomitant]
     Active Substance: SENNOSIDES

REACTIONS (2)
  - Sinusitis [Unknown]
  - Exposure to toxic agent [Unknown]
